FAERS Safety Report 18263300 (Version 26)
Quarter: 2023Q1

REPORT INFORMATION
  Report Type: Report from Study
  Country: US (occurrence: US)
  Receive Date: 20200914
  Receipt Date: 20230315
  Transmission Date: 20230417
  Serious: Yes (Other)
  Sender: FDA-Public Use
  Company Number: US-SHIRE-US202028891

PATIENT
  Age: 63 Year
  Sex: Female
  Weight: 90 kg

DRUGS (62)
  1. HUMAN IMMUNOGLOBULIN G [Suspect]
     Active Substance: HUMAN IMMUNOGLOBULIN G
     Indication: Immunodeficiency common variable
     Dosage: 45 GRAM, Q3WEEKS
     Route: 042
     Dates: start: 20121206
  2. HUMAN IMMUNOGLOBULIN G [Suspect]
     Active Substance: HUMAN IMMUNOGLOBULIN G
     Dosage: 45 GRAM, Q3WEEKS
     Route: 042
     Dates: start: 20130119
  3. HUMAN IMMUNOGLOBULIN G [Suspect]
     Active Substance: HUMAN IMMUNOGLOBULIN G
     Dosage: 45 GRAM, Q3WEEKS
     Route: 042
     Dates: start: 20140403
  4. HUMAN IMMUNOGLOBULIN G [Suspect]
     Active Substance: HUMAN IMMUNOGLOBULIN G
     Dosage: 45 GRAM, Q3WEEKS
     Route: 042
     Dates: start: 20140403
  5. HUMAN IMMUNOGLOBULIN G [Suspect]
     Active Substance: HUMAN IMMUNOGLOBULIN G
     Dosage: 45 GRAM, Q3WEEKS
     Route: 042
     Dates: start: 20140403
  6. HUMAN IMMUNOGLOBULIN G [Suspect]
     Active Substance: HUMAN IMMUNOGLOBULIN G
     Dosage: 45 GRAM, Q3WEEKS
     Route: 042
     Dates: start: 20140403
  7. VENTOLIN [Concomitant]
     Active Substance: ALBUTEROL SULFATE
  8. ALBUTEROL [Concomitant]
     Active Substance: ALBUTEROL
  9. VITAMIN D3 [Concomitant]
     Active Substance: CHOLECALCIFEROL
  10. HUMALOG JUNIOR KWIKPEN [Concomitant]
     Active Substance: INSULIN LISPRO
  11. CLONAZEPAM [Concomitant]
     Active Substance: CLONAZEPAM
  12. TYLENOL [Concomitant]
     Active Substance: ACETAMINOPHEN
  13. TRIAMTERENE AND HYDROCHLOROTHIAZIDE [Concomitant]
     Active Substance: HYDROCHLOROTHIAZIDE\TRIAMTERENE
  14. METHOCARBAMOL [Concomitant]
     Active Substance: METHOCARBAMOL
  15. DULOXETINE [Concomitant]
     Active Substance: DULOXETINE
  16. ACETAMINOPHEN [Concomitant]
     Active Substance: ACETAMINOPHEN
  17. DIPHENHYDRAMINE [Concomitant]
     Active Substance: DIPHENHYDRAMINE
  18. HYDROCORTISONE [Concomitant]
     Active Substance: HYDROCORTISONE
  19. GABAPENTIN [Concomitant]
     Active Substance: GABAPENTIN
  20. SODIUM CHLORIDE [Concomitant]
     Active Substance: SODIUM CHLORIDE
  21. EPINEPHRINE [Concomitant]
     Active Substance: EPINEPHRINE
  22. OXYGEN [Concomitant]
     Active Substance: OXYGEN
  23. LEVEMIR [Concomitant]
     Active Substance: INSULIN DETEMIR
  24. IMIQUIMOD [Concomitant]
     Active Substance: IMIQUIMOD
  25. DIETARY SUPPLEMENT\HERBALS\MILK THISTLE [Concomitant]
     Active Substance: DIETARY SUPPLEMENT\HERBALS\MILK THISTLE
  26. BIOTIN [Concomitant]
     Active Substance: BIOTIN
  27. PANTOPRAZOLE [Concomitant]
     Active Substance: PANTOPRAZOLE
  28. METOCLOPRAMIDE [Concomitant]
     Active Substance: METOCLOPRAMIDE
  29. LOSARTAN [Concomitant]
     Active Substance: LOSARTAN
  30. FLONASE ALLERGY RELIEF [Concomitant]
     Active Substance: FLUTICASONE PROPIONATE
  31. ATORVASTATIN [Concomitant]
     Active Substance: ATORVASTATIN
  32. METOPROLOL SUCCINATE [Concomitant]
     Active Substance: METOPROLOL SUCCINATE
  33. LEVOTHYROXINE [Concomitant]
     Active Substance: LEVOTHYROXINE
  34. MIRTAZAPINE [Concomitant]
     Active Substance: MIRTAZAPINE
  35. MONTELUKAST [Concomitant]
     Active Substance: MONTELUKAST SODIUM
  36. RITUXAN [Concomitant]
     Active Substance: RITUXIMAB
  37. OZEMPIC [Concomitant]
     Active Substance: SEMAGLUTIDE
  38. TRAMADOL [Concomitant]
     Active Substance: TRAMADOL
  39. TOUJEO [Concomitant]
     Active Substance: INSULIN GLARGINE
  40. UMECLIDINIUM BROMIDE\VILANTEROL TRIFENATATE [Concomitant]
     Active Substance: UMECLIDINIUM BROMIDE\VILANTEROL TRIFENATATE
  41. HUMALOG [Concomitant]
     Active Substance: INSULIN LISPRO
  42. VITAMIN D3 [Concomitant]
     Active Substance: CHOLECALCIFEROL
  43. FLUTICASONE PROPIONATE [Concomitant]
     Active Substance: FLUTICASONE PROPIONATE
  44. CALCIUM [Concomitant]
     Active Substance: CALCIUM
  45. POTASSIUM [Concomitant]
     Active Substance: POTASSIUM
  46. DIPHENHYDRAMINE HYDROCHLORIDE [Concomitant]
     Active Substance: DIPHENHYDRAMINE HYDROCHLORIDE
  47. ALBUTEROL SULFATE [Concomitant]
     Active Substance: ALBUTEROL SULFATE
  48. DULOXETINE HYDROCHLORIDE [Concomitant]
     Active Substance: DULOXETINE HYDROCHLORIDE
  49. ATORVASTATIN CALCIUM [Concomitant]
     Active Substance: ATORVASTATIN CALCIUM
  50. TRAMADOL HCL [Concomitant]
     Active Substance: TRAMADOL HYDROCHLORIDE
  51. ALBUTEROL SULFATE [Concomitant]
     Active Substance: ALBUTEROL SULFATE
  52. ANORO ELLIPTA [Concomitant]
     Active Substance: UMECLIDINIUM BROMIDE\VILANTEROL TRIFENATATE
  53. MONTELUKAST SODIUM [Concomitant]
     Active Substance: MONTELUKAST SODIUM
  54. LOSARTAN POTASSIUM [Concomitant]
     Active Substance: LOSARTAN POTASSIUM
  55. METOCLOPRAMIDE HYDROCHLORIDE [Concomitant]
     Active Substance: METOCLOPRAMIDE HYDROCHLORIDE
  56. PANTOPRAZOLE SODIUM [Concomitant]
     Active Substance: PANTOPRAZOLE SODIUM
  57. Humalog hd kwikpen [Concomitant]
     Route: 065
  58. TOUJEO MAX [Concomitant]
     Active Substance: INSULIN GLARGINE
     Route: 065
  59. WELLBUTRIN XL [Concomitant]
     Active Substance: BUPROPION HYDROCHLORIDE
  60. WELLBUTRIN SR [Concomitant]
     Active Substance: BUPROPION HYDROCHLORIDE
  61. BENZONATATE [Concomitant]
     Active Substance: BENZONATATE
  62. OMEPRAZOLE [Concomitant]
     Active Substance: OMEPRAZOLE

REACTIONS (32)
  - Diabetes mellitus [Unknown]
  - Clostridium difficile infection [Unknown]
  - Appendicitis perforated [Unknown]
  - Respiratory tract infection [Not Recovered/Not Resolved]
  - Lower respiratory tract infection [Recovering/Resolving]
  - Non-small cell lung cancer stage III [Not Recovered/Not Resolved]
  - Pneumonia [Recovering/Resolving]
  - Bradycardia [Unknown]
  - Nausea [Unknown]
  - Candida infection [Unknown]
  - Thyroid disorder [Unknown]
  - Ear infection [Recovering/Resolving]
  - Pulmonary mass [Unknown]
  - Weight fluctuation [Unknown]
  - Productive cough [Unknown]
  - Nasopharyngitis [Unknown]
  - Oxygen consumption increased [Unknown]
  - Bronchitis [Unknown]
  - Insurance issue [Unknown]
  - Upper respiratory tract infection [Unknown]
  - Anxiety [Unknown]
  - Influenza like illness [Unknown]
  - Fatigue [Unknown]
  - Influenza [Recovering/Resolving]
  - Urticaria [Unknown]
  - Pruritus [Unknown]
  - Sinusitis [Recovering/Resolving]
  - Dyspnoea [Unknown]
  - Chest pain [Unknown]
  - Malaise [Unknown]
  - Inappropriate schedule of product administration [Unknown]
  - Product dose omission issue [Unknown]

NARRATIVE: CASE EVENT DATE: 20211022
